FAERS Safety Report 5004283-9 (Version None)
Quarter: 2006Q2

REPORT INFORMATION
  Report Type: 
  Country: None (occurrence: None)
  Receive Date: 20060517
  Receipt Date: 20051109
  Transmission Date: 20061013
  Serious: Yes (Hospitalization)
  Sender: FDA-Public Use
  Company Number: US-MERCK-0511USA01569

PATIENT
  Age: 62 Year
  Sex: Female
  Weight: 70 kg

DRUGS (4)
  1. VIOXX [Suspect]
     Indication: ARTHRITIS
     Route: 048
     Dates: start: 20030601, end: 20040113
  2. ASPIRIN [Concomitant]
     Indication: PROPHYLAXIS
     Route: 048
     Dates: start: 19900101
  3. ARTANE [Concomitant]
     Indication: PARKINSON'S DISEASE
     Route: 065
     Dates: start: 19990101
  4. ARTANE [Concomitant]
     Route: 065
     Dates: start: 19990101

REACTIONS (6)
  - ACUTE CORONARY SYNDROME [None]
  - ACUTE MYOCARDIAL INFARCTION [None]
  - ARTERIOSPASM CORONARY [None]
  - CORONARY ARTERY DISEASE [None]
  - MYOCARDIAL INFARCTION [None]
  - PRINZMETAL ANGINA [None]
